FAERS Safety Report 24307540 (Version 1)
Quarter: 2024Q3

REPORT INFORMATION
  Report Type: Spontaneous
  Country: US (occurrence: US)
  Receive Date: 20240911
  Receipt Date: 20240911
  Transmission Date: 20241016
  Serious: No
  Sender: REGENERON
  Company Number: US-REGENERON PHARMACEUTICALS, INC.-2024-088228

PATIENT
  Sex: Female

DRUGS (4)
  1. EYLEA HD [Suspect]
     Active Substance: AFLIBERCEPT
     Indication: Product used for unknown indication
     Dosage: 8 MG, EVERY 4 WEEK INTO RIGHT EYE, FORMULATION: EYLEA HD
     Dates: start: 202311
  2. EYLEA HD [Suspect]
     Active Substance: AFLIBERCEPT
     Dosage: 8 MG, EVERY 4 WEEK INTO LEFT EYE, FORMULATION: EYLEA HD
     Dates: start: 202402
  3. EYLEA HD [Suspect]
     Active Substance: AFLIBERCEPT
     Dosage: 8 MG, EVERY 8 WEEKS, FORMULATION: EYLEA HD
  4. EYLEA HD [Suspect]
     Active Substance: AFLIBERCEPT
     Dosage: 8 MG, INTO BOTH EYES, FORMULATION: EYLEA HD
     Dates: start: 20240403, end: 20240403

REACTIONS (14)
  - Oral mucosal blistering [Not Recovered/Not Resolved]
  - Visual impairment [Unknown]
  - Pain in jaw [Unknown]
  - Lip swelling [Unknown]
  - Lip dry [Unknown]
  - Trismus [Unknown]
  - Ear pain [Not Recovered/Not Resolved]
  - Nasopharyngitis [Recovering/Resolving]
  - Adverse drug reaction [Unknown]
  - Photophobia [Unknown]
  - Erythema [Unknown]
  - Ocular hyperaemia [Not Recovered/Not Resolved]
  - Rash [Unknown]
  - Intentional dose omission [Recovered/Resolved]

NARRATIVE: CASE EVENT DATE: 20240101
